FAERS Safety Report 18587088 (Version 1)
Quarter: 2020Q4

REPORT INFORMATION
  Report Type: Spontaneous
  Country: PL (occurrence: PL)
  Receive Date: 20201207
  Receipt Date: 20201207
  Transmission Date: 20210114
  Serious: Yes (Hospitalization)
  Sender: FDA-Public Use
  Company Number: NVSC2020PL319465

PATIENT
  Age: 69 Year
  Sex: Female
  Weight: 96 kg

DRUGS (3)
  1. NEOPARIN [Concomitant]
     Active Substance: ENOXAPARIN SODIUM
     Indication: PERIPHERAL VENOUS DISEASE
     Dosage: 40 MG, QD
     Route: 058
     Dates: start: 20180722, end: 20180725
  2. CLINDAMYCIN. [Suspect]
     Active Substance: CLINDAMYCIN
     Indication: ARTHROPOD BITE
     Dosage: 300 MG, Q12H
     Route: 048
     Dates: start: 20180723, end: 20180724
  3. CYCLO 3 FORT [Concomitant]
     Active Substance: ASCORBIC ACID\HESPERIDIN METHYLCHALCONE\RUSCUS ACULEATUS ROOT
     Indication: PERIPHERAL VENOUS DISEASE
     Dosage: 1 DF, Q12H
     Route: 048
     Dates: start: 20180722, end: 20180725

REACTIONS (2)
  - Swelling face [Recovering/Resolving]
  - Rash [Recovering/Resolving]

NARRATIVE: CASE EVENT DATE: 20180725
